FAERS Safety Report 7170171-5 (Version None)
Quarter: 2010Q4

REPORT INFORMATION
  Report Type: 
  Country: None (occurrence: None)
  Receive Date: 20101217
  Receipt Date: 20101210
  Transmission Date: 20110411
  Serious: Yes (Other)
  Sender: FDA-Public Use
  Company Number: BR-ROCHE-734097

PATIENT
  Sex: Female
  Weight: 57 kg

DRUGS (15)
  1. TOCILIZUMAB [Suspect]
     Indication: RHEUMATOID ARTHRITIS
     Route: 042
     Dates: start: 20100813
  2. HEPARIN SODIUM [Suspect]
     Route: 065
  3. PREDNISONE [Concomitant]
  4. CALCIUM CARBONATE [Concomitant]
  5. DIOSMIN [Concomitant]
  6. FUROSEMIDE [Concomitant]
  7. CLONAZEPAM [Concomitant]
  8. METHOTREXATE [Concomitant]
     Dosage: 3 TABLET PER WEEK
  9. ALENDRONATE SODIUM [Concomitant]
     Dosage: ONE TABLET EVERY MONDAY UNDER FASTING
  10. FOLIC ACID [Concomitant]
     Dosage: EVERY THURSDAY
  11. OMEPRAZOLE [Concomitant]
  12. CITALOPRAM HYDROBROMIDE [Concomitant]
  13. ATENOLOL [Concomitant]
  14. ACETAMINOPHEN [Concomitant]
     Indication: PAIN
     Dosage: DRUG REPORTED AS ACETOAMINOPHEN
  15. DIPYRONE [Concomitant]
     Indication: PAIN

REACTIONS (4)
  - FALL [None]
  - LIMB INJURY [None]
  - THROMBOSIS [None]
  - WOUND INFECTION [None]
